FAERS Safety Report 9995468 (Version 1)
Quarter: 2014Q1

REPORT INFORMATION
  Report Type: Report from Study
  Country: US (occurrence: US)
  Receive Date: 20140311
  Receipt Date: 20140311
  Transmission Date: 20141002
  Serious: Yes (Other)
  Sender: FDA-Public Use
  Company Number: US-ROCHE-1362125

PATIENT
  Age: 38 Year
  Sex: Male

DRUGS (15)
  1. TARCEVA [Suspect]
     Indication: BRAIN NEOPLASM MALIGNANT
     Route: 065
  2. AVASTIN [Suspect]
     Indication: BRAIN NEOPLASM MALIGNANT
     Route: 065
  3. DEXAMETHASONE [Concomitant]
     Route: 048
  4. DILANTIN KAPSEALS [Concomitant]
     Route: 048
  5. DILANTIN KAPSEALS [Concomitant]
     Route: 048
  6. DILANTIN KAPSEALS [Concomitant]
     Route: 048
  7. NORCO [Concomitant]
     Indication: PAIN
     Dosage: AS NEEDED.
     Route: 048
  8. NYSTATIN [Concomitant]
     Indication: ORAL FUNGAL INFECTION
     Dosage: 100000 UNIT/ML. 1 TEASPOONFUL.
     Route: 048
  9. OMEPRAZOLE [Concomitant]
     Route: 048
  10. ZOFRAN [Concomitant]
     Route: 048
  11. PHENOBARBITAL [Concomitant]
     Route: 048
  12. PROCHLORPERAZINE [Concomitant]
     Indication: NAUSEA
     Dosage: PRN.
     Route: 048
  13. TEMODAR [Concomitant]
     Route: 048
  14. TEMODAR [Concomitant]
     Dosage: 5 DAYS ONLY.
     Route: 048
  15. TRIAMCINOLONE ACETONIDE [Concomitant]
     Indication: RASH
     Route: 061

REACTIONS (11)
  - Convulsion [Unknown]
  - Headache [Unknown]
  - Muscular weakness [Unknown]
  - Candida infection [Unknown]
  - Nausea [Unknown]
  - Rash [Unknown]
  - Fatigue [Unknown]
  - Constipation [Unknown]
  - Oral fungal infection [Unknown]
  - Laboratory test abnormal [Unknown]
  - Muscular weakness [Unknown]
